FAERS Safety Report 6832966-4 (Version None)
Quarter: 2010Q3

REPORT INFORMATION
  Report Type: 
  Country: None (occurrence: None)
  Receive Date: 20100712
  Receipt Date: 20070418
  Transmission Date: 20110219
  Serious: Yes (Other)
  Sender: FDA-Public Use
  Company Number: US-PFIZER INC-2007023363

PATIENT
  Sex: Female
  Weight: 81.6 kg

DRUGS (1)
  1. CHANTIX [Suspect]
     Indication: EX-TOBACCO USER
     Route: 048
     Dates: start: 20070214, end: 20070312

REACTIONS (2)
  - ERYTHEMA MULTIFORME [None]
  - SCAR [None]
